FAERS Safety Report 4285804-0 (Version None)
Quarter: 2004Q1

REPORT INFORMATION
  Report Type: 
  Country: None (occurrence: None)
  Receive Date: 20040203
  Receipt Date: 20040122
  Transmission Date: 20041129
  Serious: Yes (Other)
  Sender: FDA-Public Use
  Company Number: HQWYE540423JAN04

PATIENT
  Sex: Male

DRUGS (3)
  1. EFFEXOR XR [Suspect]
     Indication: DEPRESSION
     Dosage: 350 MG THREE TO FOUR TIMES DAILY ORAL
     Route: 048
  2. EFFEXOR XR [Suspect]
     Indication: PAIN
     Dosage: 350 MG THREE TO FOUR TIMES DAILY ORAL
     Route: 048
  3. NEURONTIN [Concomitant]

REACTIONS (5)
  - INTENTIONAL MISUSE [None]
  - OVERDOSE [None]
  - SINUS TACHYCARDIA [None]
  - SUDDEN ONSET OF SLEEP [None]
  - TONIC CLONIC MOVEMENTS [None]
